FAERS Safety Report 11627834 (Version 7)
Quarter: 2016Q1

REPORT INFORMATION
  Report Type: Report from Study
  Country: CA (occurrence: CA)
  Receive Date: 20151014
  Receipt Date: 20160329
  Transmission Date: 20160525
  Serious: Yes (Death, Life-Threatening, Hospitalization, Other)
  Sender: FDA-Public Use
  Company Number: CA-ROCHE-ITM201408IM006630

PATIENT
  Age: 76 Year
  Sex: Male

DRUGS (18)
  1. ESBRIET [Suspect]
     Active Substance: PIRFENIDONE
     Route: 048
     Dates: start: 201401
  2. ESBRIET [Suspect]
     Active Substance: PIRFENIDONE
     Route: 048
     Dates: start: 2015
  3. ZANTAC [Concomitant]
     Active Substance: RANITIDINE HYDROCHLORIDE
     Route: 065
     Dates: start: 20130801
  4. ESBRIET [Suspect]
     Active Substance: PIRFENIDONE
     Indication: IDIOPATHIC PULMONARY FIBROSIS
     Route: 048
     Dates: start: 20131231
  5. ESBRIET [Suspect]
     Active Substance: PIRFENIDONE
     Route: 048
     Dates: start: 201401
  6. ZOLOFT [Concomitant]
     Active Substance: SERTRALINE HYDROCHLORIDE
     Route: 065
     Dates: start: 20130801
  7. ESBRIET [Suspect]
     Active Substance: PIRFENIDONE
     Dosage: 534 MG, 801 MG
     Route: 048
     Dates: start: 201502
  8. LASIX [Concomitant]
     Active Substance: FUROSEMIDE
  9. ATIVAN [Concomitant]
     Active Substance: LORAZEPAM
  10. ATROVENT [Concomitant]
     Active Substance: IPRATROPIUM BROMIDE
  11. OXYGEN. [Concomitant]
     Active Substance: OXYGEN
  12. ESBRIET [Suspect]
     Active Substance: PIRFENIDONE
     Dosage: DOSE REDUCED
     Route: 048
     Dates: start: 201401
  13. COLACE [Concomitant]
     Active Substance: DOCUSATE SODIUM
  14. ESBRIET [Suspect]
     Active Substance: PIRFENIDONE
     Dosage: DOSE REDUCED TO 4 CAPSULES PER DAY
     Route: 048
     Dates: start: 201408
  15. ESBRIET [Suspect]
     Active Substance: PIRFENIDONE
     Dosage: 534 MG, 534 MG
     Route: 048
     Dates: start: 20140812
  16. ESBRIET [Suspect]
     Active Substance: PIRFENIDONE
     Dosage: 534 MG, 534 MG
     Route: 048
     Dates: start: 201504
  17. VENTOLIN [Concomitant]
     Active Substance: ALBUTEROL SULFATE
     Route: 065
  18. ACETYLSALICYLIC ACID [Concomitant]
     Active Substance: ASPIRIN

REACTIONS (12)
  - Decreased appetite [Unknown]
  - Anxiety [Unknown]
  - Malaise [Unknown]
  - Nausea [Recovering/Resolving]
  - Pulmonary embolism [Unknown]
  - Death [Fatal]
  - Myocardial infarction [Unknown]
  - Oxygen saturation decreased [Unknown]
  - Abdominal discomfort [Unknown]
  - Dyspnoea [Not Recovered/Not Resolved]
  - Cough [Unknown]
  - Dyspnoea [Unknown]

NARRATIVE: CASE EVENT DATE: 201409
